FAERS Safety Report 14832467 (Version 3)
Quarter: 2018Q4

REPORT INFORMATION
  Report Type: Spontaneous
  Country: US (occurrence: US)
  Receive Date: 20180501
  Receipt Date: 20181012
  Transmission Date: 20190204
  Serious: Yes (Other)
  Sender: FDA-Public Use
  Company Number: US-ASTRAZENECA-2018SE55048

PATIENT
  Age: 20188 Day
  Sex: Female

DRUGS (3)
  1. LYNPARZA [Suspect]
     Active Substance: OLAPARIB
     Indication: BREAST CANCER FEMALE
     Route: 048
     Dates: start: 20161222, end: 20171003
  2. CARBOPLATIN. [Concomitant]
     Active Substance: CARBOPLATIN
     Indication: BREAST CANCER FEMALE
     Dosage: 3 CYCLES
     Dates: start: 20161222, end: 20170223
  3. PACLITAXEL. [Concomitant]
     Active Substance: PACLITAXEL
     Indication: BREAST CANCER FEMALE
     Dosage: 3 CYCLES, WEEKLY
     Dates: start: 20161222, end: 20170223

REACTIONS (5)
  - Myelodysplastic syndrome [Not Recovered/Not Resolved]
  - Thrombocytopenia [Unknown]
  - Influenza [Unknown]
  - Contusion [Unknown]
  - Neutropenia [Unknown]

NARRATIVE: CASE EVENT DATE: 20180504
